FAERS Safety Report 25273782 (Version 1)
Quarter: 2025Q2

REPORT INFORMATION
  Report Type: Spontaneous
  Country: CL (occurrence: None)
  Receive Date: 20250504
  Receipt Date: 20250504
  Transmission Date: 20250716
  Serious: Yes (Other)
  Sender: FDA-CTU
  Company Number: None

PATIENT
  Age: 46 Year
  Sex: Female
  Weight: 78 kg

DRUGS (2)
  1. OXYMETAZOLINE HYDROCHLORIDE [Suspect]
     Active Substance: OXYMETAZOLINE HYDROCHLORIDE
     Indication: Rhinomanometry
     Dates: start: 20250502, end: 20250502
  2. VITAMIN E [Concomitant]
     Active Substance: .ALPHA.-TOCOPHEROL

REACTIONS (6)
  - Throat tightness [None]
  - Dysphagia [None]
  - Asthenia [None]
  - Limb discomfort [None]
  - Somnolence [None]
  - Discomfort [None]

NARRATIVE: CASE EVENT DATE: 20250502
